FAERS Safety Report 4996152-5 (Version None)
Quarter: 2006Q2

REPORT INFORMATION
  Report Type: 
  Country: None (occurrence: None)
  Receive Date: 20060504
  Receipt Date: 20060309
  Transmission Date: 20061013
  Serious: Yes (Other)
  Sender: FDA-Public Use
  Company Number: 2005085501

PATIENT
  Age: 35 Year
  Sex: Female

DRUGS (2)
  1. HEPARIN SODIUM [Suspect]
     Indication: ILL-DEFINED DISORDER
     Dosage: 10000 I.U. (5000 I.U., BID), SUBCUTANEOUS
     Route: 058
  2. GABEXATE (GABEXATE) [Concomitant]

REACTIONS (5)
  - ABASIA [None]
  - CATHETER RELATED COMPLICATION [None]
  - DYSURIA [None]
  - EXTRADURAL HAEMATOMA [None]
  - MUSCULAR WEAKNESS [None]
